FAERS Safety Report 20207740 (Version 1)
Quarter: 2021Q4

REPORT INFORMATION
  Report Type: Spontaneous
  Country: US (occurrence: None)
  Receive Date: 20211220
  Receipt Date: 20211220
  Transmission Date: 20220303
  Serious: No
  Sender: FDA-Public Use
  Company Number: None

PATIENT
  Age: 38 Year
  Sex: Female
  Weight: 90 kg

DRUGS (1)
  1. FLUTICASONE PROPIONATE [Suspect]
     Active Substance: FLUTICASONE PROPIONATE
     Indication: Middle ear effusion
     Dosage: OTHER STRENGTH : SPRAY;?OTHER QUANTITY : 2 SPRAY(S);?FREQUENCY : DAILY;?OTHER ROUTE : NOSE;?
     Route: 050
     Dates: start: 20211217, end: 20211220

REACTIONS (2)
  - Upper-airway cough syndrome [None]
  - Oropharyngeal pain [None]

NARRATIVE: CASE EVENT DATE: 20211218
